FAERS Safety Report 9556752 (Version 2)
Quarter: 2013Q4

REPORT INFORMATION
  Report Type: Spontaneous
  Country: US (occurrence: US)
  Receive Date: 20130926
  Receipt Date: 20131108
  Transmission Date: 20140711
  Serious: No
  Sender: FDA-Public Use
  Company Number: US-PFIZER INC-2013276210

PATIENT
  Age: 70 Year
  Sex: Female
  Weight: 90.7 kg

DRUGS (26)
  1. PRAVASTATIN SODIUM [Concomitant]
     Dosage: 40 MG TABLET, TAKE TWO TABLETS BY MOUTH EVERY DAY
     Route: 048
     Dates: start: 20100727
  2. PRO-AIR [Concomitant]
     Dosage: 108 (90 BASE) MCG/ACT. INHALE I TO 2 PUFFS EVERY 4 TO 6 HOURS AS NEEDED.
     Route: 045
     Dates: start: 20100825
  3. PROLIA [Concomitant]
     Dosage: 60 MG/ML, INJECT SUBCUTANEOUSLY 60 MG/ML EVERY 6 MONTHS
     Route: 058
     Dates: start: 20120207
  4. SYMBICORT [Concomitant]
     Dosage: 160-4.5 MCG/ACT, INHALE 2 PUFFS TWICE DAILY
     Route: 055
     Dates: start: 20100112
  5. VITAMIN D [Concomitant]
     Dosage: 50000 IU/TABLET, TAKE I TAB TWICE WEEKLY FOR 3 WEEKS THEN ONCE ACTIVE
     Route: 048
     Dates: start: 20100818
  6. ZOVIRAX [Concomitant]
     Dosage: 5 %, EXTERNAL OINTMENT APPLY A SMALL AMOUNT 3 TIMES DAILY AS DIRECTED
     Dates: start: 20130423
  7. LEVEMIR FLEX PEN [Concomitant]
     Dosage: STRENGTH1 00 UNIT/ML , 1X/DAY
     Route: 058
     Dates: start: 20130213
  8. LEVEMIR FLEX PEN [Concomitant]
     Dosage: UNK
  9. INSULIN DETEMIR [Concomitant]
     Dosage: 10 IU, 1X/DAY
     Route: 058
     Dates: start: 20111219
  10. CELECOXIB [Suspect]
     Dosage: UNK
  11. CELEBREX [Suspect]
     Indication: OSTEOARTHRITIS
     Dosage: 200 MG, QD OR BID
     Route: 048
     Dates: start: 20110621
  12. CELEBREX [Suspect]
     Indication: PAIN
  13. CELEBREX [Suspect]
     Indication: INFLAMMATION
  14. CHLORTHALIDONE [Concomitant]
     Dosage: 25 MG, 1X/DAY
     Route: 048
     Dates: start: 20130209
  15. CLONAZEPAM [Concomitant]
     Dosage: 0.5 MG, 2X/DAY
     Route: 048
     Dates: start: 20100401
  16. DICLOFENAC SODIUM [Concomitant]
     Dosage: 50 MG 1 TABLET, 2X/DAY
     Route: 048
     Dates: start: 20130830
  17. ENALAPRIL MALEATE [Concomitant]
     Dosage: 20 MG 1 TABLET, DAILY
     Route: 048
     Dates: start: 20070105
  18. FLUTICASONE PROPIONATE [Concomitant]
     Dosage: 50 MCG/ ACT NASAL SUSPENSION, USE 2 SPRAYS IN EACH NOSTRIL ONCE DAILY
     Dates: start: 20120822
  19. GABAPENTIN [Concomitant]
     Dosage: 300 MG CAPSULE, TAKE 2 CAPSULE 3 TIMES DAILY
     Route: 048
     Dates: start: 20120822
  20. ACETAMINOPHEN W/HYDROCODONE BITARTRATE [Concomitant]
     Indication: PAIN
     Dosage: 10-500 MG, TAKE I-2 TABLETS EVERY 4 HOURS AS NEEDED
     Route: 048
     Dates: start: 20120126
  21. JANUVIA [Concomitant]
     Dosage: 100 MG 1 TABLET, DAILY
     Route: 048
     Dates: start: 20100818
  22. LIDOCAINE [Concomitant]
     Dosage: 5 %, UNK
     Dates: start: 20130218
  23. LORATADINE [Concomitant]
     Dosage: 10 MG,  1 TABLET DAILY AS NEEDED
     Route: 048
     Dates: start: 20120822
  24. MONTELUKAST SODIUM [Concomitant]
     Dosage: 10 MG 1 TABLET, DAILY
     Route: 048
     Dates: start: 20100112
  25. PANTOPRAZOLE SODIUM [Concomitant]
     Dosage: 40 MG 1 TABLET, 1X/DAY
     Dates: start: 20120529
  26. PIOGLITAZONE HYDROCHLORIDE [Concomitant]
     Dosage: 45 MG 1 TABLET, DAILY
     Route: 048
     Dates: start: 20100212

REACTIONS (5)
  - Malaise [Unknown]
  - Drug intolerance [Unknown]
  - Nausea [Unknown]
  - Diarrhoea [Unknown]
  - Restless legs syndrome [Unknown]
